FAERS Safety Report 19642065 (Version 1)
Quarter: 2021Q3

REPORT INFORMATION
  Report Type: Spontaneous
  Country: IN (occurrence: IN)
  Receive Date: 20210730
  Receipt Date: 20210730
  Transmission Date: 20211014
  Serious: Yes (Death)
  Sender: FDA-Public Use
  Company Number: IN-PFIZER INC-2020506584

PATIENT
  Age: 65 Year
  Sex: Female

DRUGS (4)
  1. FULVESTRANT. [Concomitant]
     Active Substance: FULVESTRANT
     Dosage: 500 MG
     Route: 030
  2. ZOLEDRONIC ACID. [Concomitant]
     Active Substance: ZOLEDRONIC ACID
     Dosage: 4 MG IN 100 ML NS X 30 MINS ONCE IN 3 MONTHS
  3. PALBACE [Suspect]
     Active Substance: PALBOCICLIB
     Indication: BREAST CANCER METASTATIC
     Dosage: 125 MG, CYCLIC (ONCE A DAY D1?D21 7 DAYS OFF)
     Route: 048
     Dates: start: 20201222, end: 20210607
  4. SHELCAL [CALCIUM CARBONATE;COLECALCIFEROL] [Concomitant]
     Dosage: 500 MG, 2X/DAY(TWICE A DAY)

REACTIONS (9)
  - Death [Fatal]
  - General physical health deterioration [Unknown]
  - Feeding disorder [Unknown]
  - Mouth ulceration [Unknown]
  - Dysphagia [Unknown]
  - Neoplasm progression [Unknown]
  - Pharyngeal ulceration [Unknown]
  - Asthenia [Unknown]
  - Oxygen saturation decreased [Unknown]

NARRATIVE: CASE EVENT DATE: 20210606
